FAERS Safety Report 4846260-4 (Version None)
Quarter: 2005Q4

REPORT INFORMATION
  Report Type: 
  Country: None (occurrence: None)
  Receive Date: 20051130
  Receipt Date: 20051117
  Transmission Date: 20060501
  Serious: Yes (Hospitalization, Other)
  Sender: FDA-Public Use
  Company Number: 2005136194

PATIENT
  Age: 67 Year
  Sex: Female
  Weight: 63.5036 kg

DRUGS (7)
  1. LIPITOR [Suspect]
     Indication: BLOOD CHOLESTEROL INCREASED
     Dosage: 10 MG (10 MG, 1 IN 1 D)
     Dates: start: 19970101
  2. ESTRADIOL [Concomitant]
  3. PLAVIX [Concomitant]
  4. SYNTHROID [Concomitant]
  5. CYMBALTA [Concomitant]
  6. LORAZEPAM [Concomitant]
  7. ASPIRIN [Concomitant]

REACTIONS (2)
  - CEREBROVASCULAR ACCIDENT [None]
  - DIABETES MELLITUS [None]
